FAERS Safety Report 4661723-2 (Version None)
Quarter: 2005Q2

REPORT INFORMATION
  Report Type: 
  Country: None (occurrence: None)
  Receive Date: 20050511
  Receipt Date: 20050511
  Transmission Date: 20051028
  Serious: Yes (Hospitalization)
  Sender: FDA-Public Use
  Company Number: None

PATIENT
  Age: 50 Year
  Sex: Female

DRUGS (8)
  1. PROCRIT (EPOETIN ALFA) BY ORTHO BIOTECH [Suspect]
     Indication: ANAEMIA
     Dosage: 90,000 IU SQ  WEEKLY
     Route: 058
     Dates: start: 20050325
  2. GEMZAR [Suspect]
     Indication: PANCREATIC CARCINOMA
     Dates: start: 20050325
  3. ERBITUX [Suspect]
     Indication: PANCREATIC CARCINOMA
     Dates: start: 20050325
  4. LASIX [Concomitant]
  5. PHENERGAN [Concomitant]
  6. PALLADONE [Concomitant]
  7. HYDROMORPHONE HCL [Concomitant]
  8. AMBIEN [Concomitant]

REACTIONS (2)
  - ADVERSE EVENT [None]
  - PYREXIA [None]
